FAERS Safety Report 6096971-0 (Version None)
Quarter: 2009Q1

REPORT INFORMATION
  Report Type: 
  Country: None (occurrence: None)
  Receive Date: 20090227
  Receipt Date: 20090217
  Transmission Date: 20090719
  Serious: Yes (Hospitalization)
  Sender: FDA-Public Use
  Company Number: ES-PFIZER INC-2009171308

PATIENT

DRUGS (9)
  1. LYRICA [Suspect]
     Dosage: 150 MG, 1X/DAY
     Dates: start: 20081006, end: 20081015
  2. PANTOPRAZOLE [Suspect]
     Dates: start: 20081006, end: 20081015
  3. IBUPROFEN [Suspect]
     Dosage: UNK
     Dates: start: 20081007, end: 20081014
  4. CIPROFLOXACIN [Suspect]
     Dates: start: 20081006, end: 20081015
  5. VANCOMYCIN [Suspect]
     Dates: start: 20081006, end: 20081015
  6. SIMVASTATIN [Concomitant]
  7. ASTUDAL [Concomitant]
  8. HEMOVAS [Concomitant]
  9. SEGURIL [Concomitant]

REACTIONS (2)
  - SCROTAL OEDEMA [None]
  - TONGUE OEDEMA [None]
